FAERS Safety Report 26208316 (Version 1)
Quarter: 2025Q4

REPORT INFORMATION
  Report Type: Spontaneous
  Country: US (occurrence: None)
  Receive Date: 20251226
  Receipt Date: 20251226
  Transmission Date: 20260118
  Serious: No
  Sender: FDA-CTU
  Company Number: None

PATIENT

DRUGS (3)
  1. VALACYCLOVIR [Suspect]
     Active Substance: VALACYCLOVIR HYDROCHLORIDE
  2. ACYCLOVIR [Suspect]
     Active Substance: ACYCLOVIR
  3. TIZANIDINE [Suspect]
     Active Substance: TIZANIDINE

REACTIONS (2)
  - Drug interaction [None]
  - Product label issue [None]
